FAERS Safety Report 13009462 (Version 1)
Quarter: 2016Q4

REPORT INFORMATION
  Report Type: Spontaneous
  Country: US (occurrence: US)
  Receive Date: 20161208
  Receipt Date: 20161208
  Transmission Date: 20170207
  Serious: No
  Sender: FDA-Public Use
  Company Number: US-PERRIGO-16US016703

PATIENT
  Age: 54 Year
  Sex: Female
  Weight: 74.83 kg

DRUGS (1)
  1. MINOXIDIL. [Suspect]
     Active Substance: MINOXIDIL
     Indication: ALOPECIA
     Dosage: 1 ML, BID
     Route: 061
     Dates: start: 20160524, end: 20160525

REACTIONS (4)
  - Pruritus [Not Recovered/Not Resolved]
  - Application site pruritus [Not Recovered/Not Resolved]
  - Wrong technique in product usage process [Recovered/Resolved]
  - Rash [Not Recovered/Not Resolved]

NARRATIVE: CASE EVENT DATE: 20160524
